FAERS Safety Report 6318540-7 (Version None)
Quarter: 2009Q3

REPORT INFORMATION
  Report Type: 
  Country: None (occurrence: None)
  Receive Date: 20090821
  Receipt Date: 20090812
  Transmission Date: 20100115
  Serious: Yes (Other)
  Sender: FDA-Public Use
  Company Number: PHHY2009BR33930

PATIENT
  Sex: Female

DRUGS (1)
  1. FORASEQ [Suspect]
     Indication: BRONCHIECTASIS

REACTIONS (4)
  - BREAST CANCER [None]
  - BREAST MASS [None]
  - FATIGUE [None]
  - TREATMENT NONCOMPLIANCE [None]
